FAERS Safety Report 9390970 (Version 4)
Quarter: 2013Q4

REPORT INFORMATION
  Report Type: Spontaneous
  Country: US (occurrence: US)
  Receive Date: 20130709
  Receipt Date: 20131209
  Transmission Date: 20140711
  Serious: No
  Sender: FDA-Public Use
  Company Number: US-PFIZER INC-2013199333

PATIENT
  Age: 74 Year
  Sex: Female
  Weight: 108 kg

DRUGS (5)
  1. SUTENT [Suspect]
     Indication: RENAL CANCER
     Dosage: 37.5 MG, 1X/DAY (12.5 MG TAKE 3 CAPSULES ONCE DAILY)
     Route: 048
     Dates: start: 20130611
  2. ONDANSETRON [Concomitant]
     Indication: NAUSEA
     Dosage: 8 MG, 3X/DAY
     Dates: start: 20130611
  3. TYLENOL WITH CODEINE [Concomitant]
     Dosage: UNK
  4. VITAMIN E [Concomitant]
     Dosage: UNK
  5. TYLENOL [Concomitant]
     Indication: PAIN
     Dosage: UNK

REACTIONS (2)
  - Flatulence [Not Recovered/Not Resolved]
  - Pain [Unknown]
